FAERS Safety Report 24877602 (Version 1)
Quarter: 2025Q1

REPORT INFORMATION
  Report Type: Spontaneous
  Country: US (occurrence: US)
  Receive Date: 20250123
  Receipt Date: 20250123
  Transmission Date: 20250408
  Serious: No
  Sender: BRISTOL-MYERS SQUIBB COMPANY
  Company Number: US-BRISTOL-MYERS SQUIBB COMPANY-2025-009773

PATIENT
  Age: 35 Year
  Sex: Male

DRUGS (2)
  1. COBENFY [Suspect]
     Active Substance: TROSPIUM CHLORIDE\XANOMELINE
     Indication: Schizophrenia
     Dosage: DOSE; 50MG/20MG
     Route: 048
     Dates: start: 20241104, end: 20241129
  2. COBENFY [Suspect]
     Active Substance: TROSPIUM CHLORIDE\XANOMELINE
     Dosage: DOSE; 50MG/20MG
     Route: 048
     Dates: start: 20241204, end: 20250101

REACTIONS (1)
  - Anger [Recovered/Resolved]

NARRATIVE: CASE EVENT DATE: 20241105
